FAERS Safety Report 7351282-8 (Version None)
Quarter: 2011Q1

REPORT INFORMATION
  Report Type: 
  Country: None (occurrence: None)
  Receive Date: 20110314
  Receipt Date: 20110310
  Transmission Date: 20110831
  Serious: Yes (Hospitalization, Other)
  Sender: FDA-Public Use
  Company Number: US-PFIZER INC-2011003909

PATIENT
  Sex: Male

DRUGS (1)
  1. CHANTIX [Suspect]
     Indication: SMOKING CESSATION THERAPY
     Dosage: UNK
     Dates: start: 20070317, end: 20070501

REACTIONS (8)
  - SUICIDAL BEHAVIOUR [None]
  - SCHIZOPHRENIA [None]
  - DEPRESSION [None]
  - ATTENTION DEFICIT/HYPERACTIVITY DISORDER [None]
  - PERSONALITY DISORDER [None]
  - ALCOHOLISM [None]
  - ANXIETY [None]
  - MENTAL DISORDER [None]
